FAERS Safety Report 20364184 (Version 1)
Quarter: 2022Q1

REPORT INFORMATION
  Report Type: Spontaneous
  Country: BR (occurrence: BR)
  Receive Date: 20220121
  Receipt Date: 20220121
  Transmission Date: 20220423
  Serious: Yes (Other)
  Sender: FDA-Public Use
  Company Number: BR-ELI_LILLY_AND_COMPANY-BR202201004720

PATIENT
  Sex: Female
  Weight: 45 kg

DRUGS (11)
  1. FORTEO [Suspect]
     Active Substance: TERIPARATIDE
     Indication: Osteoporosis
     Dosage: UNK, UNKNOWN
     Route: 065
  2. PANTOPRAZOLE [Concomitant]
     Active Substance: PANTOPRAZOLE
     Dosage: UNK, UNKNOWN
  3. FLORINEFE [Concomitant]
     Dosage: UNK, UNKNOWN
  4. DONEPEZIL [Concomitant]
     Active Substance: DONEPEZIL
     Dosage: UNK, UNKNOWN
  5. CITALOPRAM [Concomitant]
     Active Substance: CITALOPRAM HYDROBROMIDE
  6. ADERAN [SIBUTRAMINE HYDROCHLORIDE] [Concomitant]
     Dosage: UNK, UNKNOWN
  7. OSSOTRAT-D [Concomitant]
     Dosage: UNK, UNKNOWN
  8. MEMANTINA [MEMANTINE HYDROCHLORIDE] [Concomitant]
     Dosage: UNK, UNKNOWN
  9. QUETIAPINE [Concomitant]
     Active Substance: QUETIAPINE
     Dosage: UNK, UNKNOWN
  10. CITONEURIN [CYANOCOBALAMIN;PYRIDOXINE HYDROCH [Concomitant]
     Dosage: UNK, UNKNOWN
  11. OLANZAPINE [Concomitant]
     Active Substance: OLANZAPINE
     Dosage: UNK, UNKNOWN

REACTIONS (1)
  - Colon cancer [Unknown]
